FAERS Safety Report 15929260 (Version 5)
Quarter: 2019Q2

REPORT INFORMATION
  Report Type: Spontaneous
  Country: US (occurrence: US)
  Receive Date: 20190206
  Receipt Date: 20190430
  Transmission Date: 20190711
  Serious: Yes (Hospitalization, Other)
  Sender: FDA-Public Use
  Company Number: US-PFIZER INC-2019056450

PATIENT
  Age: 55 Year
  Sex: Female

DRUGS (143)
  1. WELLBUTRIN [Concomitant]
     Active Substance: BUPROPION HYDROCHLORIDE
     Indication: DEPRESSION
  2. SIMVASTATIN. [Concomitant]
     Active Substance: SIMVASTATIN
     Indication: BLOOD CHOLESTEROL INCREASED
     Dosage: UNK
     Dates: start: 2015
  3. AMOXICILLIN. [Concomitant]
     Active Substance: AMOXICILLIN
     Indication: INFECTION
     Dosage: UNK
     Dates: start: 2009, end: 2017
  4. MONTELUKAST [Concomitant]
     Active Substance: MONTELUKAST SODIUM
     Indication: HYPERSENSITIVITY
     Dosage: UNK
     Dates: start: 2009
  5. DIAZEPAM. [Concomitant]
     Active Substance: DIAZEPAM
     Indication: SEIZURE
  6. HYDROXYZINE PAMOATE. [Concomitant]
     Active Substance: HYDROXYZINE PAMOATE
     Indication: NAUSEA
  7. DOXYCYCLINE. [Concomitant]
     Active Substance: DOXYCYCLINE
     Indication: INFECTION
     Dosage: UNK
     Dates: start: 2006
  8. METHOCARBAMOL. [Concomitant]
     Active Substance: METHOCARBAMOL
     Indication: MYALGIA
  9. SOMA [Concomitant]
     Active Substance: CARISOPRODOL
     Indication: MUSCLE SPASMS
     Dosage: UNK
     Dates: start: 2006, end: 2010
  10. SOMA [Concomitant]
     Active Substance: CARISOPRODOL
     Indication: MYALGIA
  11. ABILIFY [Concomitant]
     Active Substance: ARIPIPRAZOLE
     Indication: DEPRESSION
  12. ACETAMINOPHEN AND CODEINE [Concomitant]
     Active Substance: ACETAMINOPHEN\CODEINE PHOSPHATE
     Indication: PAIN
     Dosage: UNK
     Dates: start: 2008
  13. PROMETHAZINE [Concomitant]
     Active Substance: PROMETHAZINE\PROMETHAZINE HYDROCHLORIDE
     Indication: HYPERSENSITIVITY
     Dosage: UNK
     Dates: start: 2006
  14. RANITIDINE. [Concomitant]
     Active Substance: RANITIDINE
     Indication: GASTROOESOPHAGEAL REFLUX DISEASE
     Dosage: UNK
     Dates: start: 2006
  15. CLINDAMYCIN. [Concomitant]
     Active Substance: CLINDAMYCIN
     Indication: INFECTION
     Dosage: UNK
     Dates: start: 2007
  16. HYDROCODONE/ACETAMINOPHEN [Concomitant]
     Active Substance: ACETAMINOPHEN\HYDROCODONE
     Indication: PAIN
     Dosage: UNK
     Dates: start: 2006, end: 2018
  17. AMITRIPTYLINE [Concomitant]
     Active Substance: AMITRIPTYLINE
     Indication: NEURALGIA
     Dosage: UNK
     Dates: start: 2013, end: 2018
  18. XARELTO [Concomitant]
     Active Substance: RIVAROXABAN
     Indication: THROMBOSIS
     Dosage: UNK
     Dates: start: 2016, end: 2018
  19. METRONIDAZOLE. [Concomitant]
     Active Substance: METRONIDAZOLE
     Indication: INFECTION
     Dosage: UNK
     Dates: start: 2010, end: 2015
  20. MORPHINE SULFATE. [Concomitant]
     Active Substance: MORPHINE SULFATE
     Indication: DRUG ABUSE
     Dosage: UNK
     Dates: start: 2012, end: 2014
  21. TOPIRAMATE. [Concomitant]
     Active Substance: TOPIRAMATE
     Indication: MIGRAINE
  22. CITALOPRAM [Concomitant]
     Active Substance: CITALOPRAM HYDROBROMIDE
     Indication: DEPRESSION
     Dosage: UNK
     Dates: start: 2006, end: 2014
  23. CLINDAMAX [CLINDAMYCIN HYDROCHLORIDE] [Concomitant]
     Indication: INFECTION
     Dosage: UNK
     Dates: start: 2006
  24. TERCONAZOLE. [Concomitant]
     Active Substance: TERCONAZOLE
     Indication: VULVOVAGINAL MYCOTIC INFECTION
     Dosage: UNK
     Dates: start: 2006
  25. METHOCARBAMOL. [Concomitant]
     Active Substance: METHOCARBAMOL
     Indication: MUSCLE SPASMS
     Dosage: UNK
     Dates: start: 2006, end: 2007
  26. AMOXCLAV [AMOXICILLIN;CLAVULANIC ACID] [Concomitant]
     Indication: INFECTION
     Dosage: UNK
     Dates: start: 2010
  27. IBUPROFEN. [Concomitant]
     Active Substance: IBUPROFEN
     Indication: PYREXIA
     Dosage: UNK
     Dates: start: 2006
  28. IBUPROFEN. [Concomitant]
     Active Substance: IBUPROFEN
     Indication: HEADACHE
  29. BOTOX [Concomitant]
     Active Substance: ONABOTULINUMTOXINA
     Indication: MIGRAINE
     Dosage: UNK
     Dates: start: 2006, end: 2007
  30. PROTONIX [Suspect]
     Active Substance: PANTOPRAZOLE SODIUM
     Dosage: 20 MG, DAILY
     Route: 048
     Dates: start: 2013, end: 2014
  31. WELLBUTRIN [Concomitant]
     Active Substance: BUPROPION HYDROCHLORIDE
     Indication: SMOKING CESSATION THERAPY
     Dosage: UNK
     Dates: start: 2012
  32. VITAMIN D [VITAMIN D NOS] [Concomitant]
     Active Substance: VITAMIN D NOS
     Indication: VITAMIN D DEFICIENCY
     Dosage: UNK
     Dates: start: 2013
  33. ONDANSETRON [Concomitant]
     Active Substance: ONDANSETRON
     Indication: VOMITING
  34. FENTANYL TRANSDERMAL SYSTEM [Concomitant]
     Active Substance: FENTANYL
     Indication: PAIN
     Dosage: UNK
     Dates: start: 2014, end: 2016
  35. VITAMIN B12 [Concomitant]
     Active Substance: CYANOCOBALAMIN
     Indication: VITAMIN SUPPLEMENTATION
     Dosage: UNK
     Dates: start: 2015
  36. PRAVASTATIN SODIUM. [Concomitant]
     Active Substance: PRAVASTATIN SODIUM
     Indication: BLOOD CHOLESTEROL INCREASED
     Dosage: UNK
     Dates: start: 2009, end: 2014
  37. FUROSEMIDE. [Concomitant]
     Active Substance: FUROSEMIDE
     Indication: FLUID RETENTION
     Dosage: UNK
     Dates: start: 2012, end: 2014
  38. TOPIRAMATE. [Concomitant]
     Active Substance: TOPIRAMATE
     Indication: NEURALGIA
     Dosage: UNK
     Dates: start: 2014, end: 2014
  39. FAMOTIDINE. [Concomitant]
     Active Substance: FAMOTIDINE
     Indication: GASTROOESOPHAGEAL REFLUX DISEASE
     Dosage: UNK
     Dates: start: 2010, end: 2013
  40. FLUVIRIN [CHLORPHENAMINE MALEATE;METAMIZOLE SODIUM;MOROXYDINE;PHENYLEP [Concomitant]
     Indication: ANTIVIRAL PROPHYLAXIS
     Dosage: UNK
     Dates: start: 2010, end: 2015
  41. DOCQLACE [Concomitant]
     Active Substance: DOCUSATE SODIUM
     Indication: FAECES HARD
     Dosage: UNK
     Dates: start: 2013
  42. TRETINOIN. [Concomitant]
     Active Substance: TRETINOIN
     Indication: ACNE
     Dosage: UNK
     Dates: start: 2007, end: 2010
  43. IBUPROFEN. [Concomitant]
     Active Substance: IBUPROFEN
     Indication: BACK PAIN
  44. PROMETHAZINE [Concomitant]
     Active Substance: PROMETHAZINE\PROMETHAZINE HYDROCHLORIDE
     Indication: MOTION SICKNESS
  45. CLOTRIMAZOLE. [Concomitant]
     Active Substance: CLOTRIMAZOLE
     Indication: INFECTION
     Dosage: UNK
     Dates: start: 2007
  46. ROBITUSSIN (GUAIFENESIN) [Concomitant]
     Active Substance: GUAIFENESIN
     Indication: COUGH
  47. ASPIRIN. [Concomitant]
     Active Substance: ASPIRIN
     Indication: BLOOD DISORDER
     Dosage: DAILY
  48. NAPROXEN. [Concomitant]
     Active Substance: NAPROXEN
     Indication: NEURALGIA
     Dosage: UNK UNK, AS NEEDED
  49. NAPROXEN. [Concomitant]
     Active Substance: NAPROXEN
     Indication: HEADACHE
  50. NAPROXEN. [Concomitant]
     Active Substance: NAPROXEN
     Indication: BACK PAIN
  51. ADVIL [IBUPROFEN] [Concomitant]
     Active Substance: IBUPROFEN
     Indication: BACK PAIN
  52. NARCAN [Concomitant]
     Active Substance: NALOXONE HYDROCHLORIDE
     Indication: DRUG ABUSE
     Dosage: UNK
     Dates: start: 2018
  53. FERROUS SULFATE. [Concomitant]
     Active Substance: FERROUS SULFATE
     Indication: IRON DEFICIENCY
     Dosage: UNK
     Dates: start: 2007
  54. LEVOTHYROXINE SODIUM. [Concomitant]
     Active Substance: LEVOTHYROXINE SODIUM
     Indication: HYPOTHYROIDISM
     Dosage: UNK
     Dates: start: 2016
  55. SAVELLA [Concomitant]
     Active Substance: MILNACIPRAN HYDROCHLORIDE
     Indication: NEURALGIA
     Dosage: UNK
     Dates: start: 2009, end: 2018
  56. CEPHALEXIN [CEFALEXIN] [Concomitant]
     Active Substance: CEPHALEXIN
     Indication: INFECTION
     Dosage: UNK
     Dates: start: 2017
  57. LISINOPRIL. [Concomitant]
     Active Substance: LISINOPRIL
     Indication: HYPERTENSION
     Dosage: UNK
     Dates: start: 2013, end: 2016
  58. FLULAVAL [Concomitant]
     Indication: INFLUENZA
     Dosage: UNK
     Dates: start: 2014
  59. PROVENTIL HFA [Concomitant]
     Active Substance: ALBUTEROL SULFATE
     Indication: DYSPNOEA
     Dosage: UNK
     Dates: start: 2010, end: 2014
  60. DIAZEPAM. [Concomitant]
     Active Substance: DIAZEPAM
     Indication: MUSCLE SPASMS
  61. HYDROXYZINE PAMOATE. [Concomitant]
     Active Substance: HYDROXYZINE PAMOATE
     Indication: HYPERSENSITIVITY
  62. FAMOTIDINE. [Concomitant]
     Active Substance: FAMOTIDINE
     Dosage: UNK
     Dates: start: 2010, end: 2012
  63. NYSTATIN. [Concomitant]
     Active Substance: NYSTATIN
     Indication: FUNGAL INFECTION
     Dosage: UNK
     Dates: start: 2016
  64. CHLORHEXIDINE [Concomitant]
     Active Substance: CHLORHEXIDINE
     Indication: GINGIVAL DISORDER
     Dosage: UNK
     Dates: start: 2006, end: 2016
  65. PEG 3350 + ELECTROLYTES [Concomitant]
     Indication: SURGERY
     Dosage: UNK
     Dates: start: 2012
  66. DULERA [Concomitant]
     Active Substance: FORMOTEROL FUMARATE DIHYDRATE\MOMETASONE FUROATE
     Indication: ASTHMA
     Dosage: UNK
     Dates: start: 2012, end: 2013
  67. ZOSTAVAX [Concomitant]
     Active Substance: VARICELLA-ZOSTER VIRUS STRAIN OKA/MERCK LIVE ANTIGEN
     Indication: HERPES ZOSTER
     Dosage: UNK
     Dates: start: 2012
  68. TRAMADOL. [Concomitant]
     Active Substance: TRAMADOL
     Indication: PAIN
     Dosage: UNK
     Dates: start: 2009, end: 2010
  69. VAZOBID [Concomitant]
     Indication: INFLUENZA
  70. ROBITUSSIN (GUAIFENESIN) [Concomitant]
     Active Substance: GUAIFENESIN
     Indication: NASOPHARYNGITIS
     Dosage: UNK
     Dates: start: 2007
  71. QVAR [Concomitant]
     Active Substance: BECLOMETHASONE DIPROPIONATE
     Indication: DYSPNOEA
     Dosage: UNK
     Dates: start: 2010
  72. PREVACID [Suspect]
     Active Substance: LANSOPRAZOLE
     Dosage: UNK
  73. PROTONIX [Suspect]
     Active Substance: PANTOPRAZOLE SODIUM
     Indication: GASTROOESOPHAGEAL REFLUX DISEASE
     Dosage: UNK
     Dates: start: 2004, end: 2017
  74. DEXILANT [Suspect]
     Active Substance: DEXLANSOPRAZOLE
     Indication: GASTROOESOPHAGEAL REFLUX DISEASE
     Dosage: UNK
     Dates: start: 2004, end: 2017
  75. DEXILANT [Suspect]
     Active Substance: DEXLANSOPRAZOLE
     Dosage: 30 MG, DAILY
     Route: 048
     Dates: start: 2011, end: 2014
  76. GABAPENTIN. [Concomitant]
     Active Substance: GABAPENTIN
     Indication: NEURALGIA
     Dosage: UNK
     Dates: start: 2016
  77. MAG-OX [Concomitant]
     Active Substance: MAGNESIUM OXIDE
     Indication: BLOOD MAGNESIUM DECREASED
     Dosage: UNK
     Dates: start: 2016
  78. METFORMIN [Concomitant]
     Active Substance: METFORMIN HYDROCHLORIDE
     Indication: BLOOD GLUCOSE INCREASED
     Dosage: UNK
     Dates: start: 2017
  79. CARVEDILOL. [Concomitant]
     Active Substance: CARVEDILOL
     Indication: HYPERTENSION
     Dosage: UNK
     Dates: start: 2017
  80. VITAMIN D [VITAMIN D NOS] [Concomitant]
     Active Substance: VITAMIN D NOS
     Indication: CALCIUM DEFICIENCY
     Dosage: UNK
     Dates: start: 2014
  81. PENICILLIN V-K [Concomitant]
     Active Substance: PENICILLIN V POTASSIUM
     Indication: INFECTION
     Dosage: UNK
     Dates: start: 2007, end: 2017
  82. PREDNISONE. [Concomitant]
     Active Substance: PREDNISONE
     Indication: INFLAMMATION
     Dosage: UNK
     Dates: start: 2006, end: 2017
  83. MONTELUKAST [Concomitant]
     Active Substance: MONTELUKAST SODIUM
     Indication: ASTHMA
  84. TIZANIDINE. [Concomitant]
     Active Substance: TIZANIDINE
     Indication: MUSCLE RELAXANT THERAPY
     Dosage: UNK
     Dates: start: 2013, end: 2014
  85. HYDROXYZINE PAMOATE. [Concomitant]
     Active Substance: HYDROXYZINE PAMOATE
     Indication: ANXIETY
  86. CLINDAMYCIN. [Concomitant]
     Active Substance: CLINDAMYCIN
     Indication: INFECTION
     Dosage: UNK
     Dates: start: 2006, end: 2017
  87. MELOXICAM. [Concomitant]
     Active Substance: MELOXICAM
     Indication: ARTHRITIS
     Dosage: UNK
     Dates: start: 2007
  88. ZAZOLE [Concomitant]
     Active Substance: TERCONAZOLE
     Indication: FUNGAL INFECTION
     Dosage: UNK
     Dates: start: 2007
  89. ADVIL [IBUPROFEN] [Concomitant]
     Active Substance: IBUPROFEN
     Indication: BONE PAIN
  90. HELIDAC [BISMUTH SUBSALICYLATE;METRONIDAZOLE;TETRACYCLINE] [Concomitant]
     Indication: DUODENAL ULCER
     Dosage: UNK
     Dates: start: 2007
  91. NEXIUM [Suspect]
     Active Substance: ESOMEPRAZOLE MAGNESIUM
     Dosage: 40 MG, DAILY
     Route: 048
     Dates: start: 2006, end: 2017
  92. PROTONIX [Suspect]
     Active Substance: PANTOPRAZOLE SODIUM
     Dosage: UNK
     Dates: start: 2016
  93. MIRTAZAPINE. [Concomitant]
     Active Substance: MIRTAZAPINE
     Indication: DEPRESSION
     Dosage: UNK
     Dates: start: 2018, end: 2018
  94. CYCLOBENZAPRINE. [Concomitant]
     Active Substance: CYCLOBENZAPRINE
     Indication: MUSCLE RELAXANT THERAPY
     Dosage: UNK
     Dates: start: 2014, end: 2018
  95. SAVELLA [Concomitant]
     Active Substance: MILNACIPRAN HYDROCHLORIDE
     Indication: DEPRESSION
  96. DIAZEPAM. [Concomitant]
     Active Substance: DIAZEPAM
     Indication: ANXIETY
     Dosage: UNK
     Dates: start: 2006, end: 2014
  97. BUSPIRONE [Concomitant]
     Active Substance: BUSPIRONE HYDROCHLORIDE
     Indication: ANXIETY
     Dosage: UNK
     Dates: start: 2006, end: 2012
  98. KEPPRA [Concomitant]
     Active Substance: LEVETIRACETAM
     Indication: SEIZURE
     Dosage: UNK
     Dates: start: 2009
  99. ADVAIR HFA [Concomitant]
     Active Substance: FLUTICASONE PROPIONATE\SALMETEROL XINAFOATE
     Indication: ASTHMA
     Dosage: UNK
     Dates: start: 2007, end: 2008
  100. EPIPEN [Concomitant]
     Active Substance: EPINEPHRINE
     Indication: ASTHMA
     Dosage: UNK
     Dates: start: 2006, end: 2008
  101. EPIPEN [Concomitant]
     Active Substance: EPINEPHRINE
     Indication: HYPERSENSITIVITY
  102. IBUPROFEN. [Concomitant]
     Active Substance: IBUPROFEN
     Indication: PAIN
  103. IBUPROFEN. [Concomitant]
     Active Substance: IBUPROFEN
     Indication: BONE PAIN
  104. IBUPROFEN. [Concomitant]
     Active Substance: IBUPROFEN
     Indication: NEURALGIA
  105. TYLENOL [Concomitant]
     Active Substance: ACETAMINOPHEN
     Indication: HEADACHE
     Dosage: UNK UNK, AS NEEDED
  106. ADVIL [IBUPROFEN] [Concomitant]
     Active Substance: IBUPROFEN
     Indication: NEURALGIA
  107. ADVIL [IBUPROFEN] [Concomitant]
     Active Substance: IBUPROFEN
     Indication: HEADACHE
  108. NEXIUM [Suspect]
     Active Substance: ESOMEPRAZOLE MAGNESIUM
     Indication: GASTROOESOPHAGEAL REFLUX DISEASE
     Dosage: UNK
     Dates: start: 2004, end: 2017
  109. AMITRIPTYLINE [Concomitant]
     Active Substance: AMITRIPTYLINE
     Indication: DEPRESSION
  110. SUPRAX [Concomitant]
     Active Substance: CEFIXIME
     Indication: INFECTION
     Dosage: UNK
     Dates: start: 2018
  111. PHENAZOPYRIDINE. [Concomitant]
     Active Substance: PHENAZOPYRIDINE
     Indication: URINARY TRACT INFECTION
     Dosage: UNK
     Dates: start: 2018
  112. ONDANSETRON [Concomitant]
     Active Substance: ONDANSETRON
     Indication: NAUSEA
     Dosage: UNK
     Dates: start: 2017
  113. CHLORTHALIDONE. [Concomitant]
     Active Substance: CHLORTHALIDONE
     Indication: FLUID RETENTION
  114. VITRON-C [Concomitant]
     Active Substance: ASCORBIC ACID\IRON
     Indication: BLOOD IRON DECREASED
     Dosage: UNK
     Dates: start: 2016
  115. LOSARTAN POTASSIUM. [Concomitant]
     Active Substance: LOSARTAN POTASSIUM
     Indication: HYPERTENSION
     Dosage: UNK
     Dates: start: 2016
  116. OXYCODONE [Concomitant]
     Active Substance: OXYCODONE
     Indication: PAIN
     Dosage: UNK
     Dates: start: 2006, end: 2014
  117. HYDROXYZINE PAMOATE. [Concomitant]
     Active Substance: HYDROXYZINE PAMOATE
     Indication: VOMITING
  118. KLOR-CON [Concomitant]
     Active Substance: POTASSIUM CHLORIDE
     Indication: BLOOD POTASSIUM DECREASED
     Dosage: UNK
     Dates: start: 2012, end: 2013
  119. FAMOTIDINE. [Concomitant]
     Active Substance: FAMOTIDINE
     Dosage: UNK
     Dates: start: 2017
  120. ALBUTEROL SULFATE. [Concomitant]
     Active Substance: ALBUTEROL SULFATE
     Indication: BRONCHOSPASM
     Dosage: UNK
     Dates: start: 2006, end: 2007
  121. SOMA [Concomitant]
     Active Substance: CARISOPRODOL
     Indication: MUSCULOSKELETAL STIFFNESS
  122. NEOMYCIN. [Concomitant]
     Active Substance: NEOMYCIN
     Indication: INFECTION
     Dosage: UNK
     Dates: start: 2013
  123. DENTA 5000 PLUS [Concomitant]
     Active Substance: SODIUM FLUORIDE
     Indication: DENTAL CARIES
     Dosage: UNK
     Dates: start: 2007, end: 2010
  124. PROMETHAZINE [Concomitant]
     Active Substance: PROMETHAZINE\PROMETHAZINE HYDROCHLORIDE
     Indication: SEDATIVE THERAPY
  125. VAZOBID [Concomitant]
     Indication: NASOPHARYNGITIS
     Dosage: UNK
     Dates: start: 2007
  126. ZANTAC [Concomitant]
     Active Substance: RANITIDINE HYDROCHLORIDE
     Dosage: UNK
     Dates: start: 2017
  127. TYLENOL [Concomitant]
     Active Substance: ACETAMINOPHEN
     Indication: BACK PAIN
  128. VITAMIN D2 [Concomitant]
     Active Substance: ERGOCALCIFEROL
     Indication: HYPOPARATHYROIDISM
     Dosage: UNK
     Dates: start: 2014, end: 2018
  129. REQUIP [Concomitant]
     Active Substance: ROPINIROLE HYDROCHLORIDE
     Indication: RESTLESS LEGS SYNDROME
     Dosage: UNK
     Dates: start: 2005, end: 2018
  130. NITROFURANTOIN MONOHYDRATE MACROCRYSTALS [Concomitant]
     Active Substance: NITROFURANTOIN\NITROFURANTOIN MONOHYDRATE
     Indication: URINARY TRACT INFECTION
     Dosage: UNK
     Dates: start: 2006, end: 2017
  131. VALACYCLOVIR [Concomitant]
     Active Substance: VALACYCLOVIR HYDROCHLORIDE
     Indication: HERPES VIRUS INFECTION
     Dosage: UNK
     Dates: start: 2017
  132. CHLORTHALIDONE. [Concomitant]
     Active Substance: CHLORTHALIDONE
     Indication: HYPERTENSION
     Dosage: UNK
     Dates: start: 2015, end: 2017
  133. METHYLPREDNISOLONE. [Concomitant]
     Active Substance: METHYLPREDNISOLONE
     Indication: INFLAMMATION
     Dosage: UNK
     Dates: start: 2016
  134. CETIRIZINE [Concomitant]
     Active Substance: CETIRIZINE HYDROCHLORIDE
     Indication: HYPERSENSITIVITY
     Dosage: UNK
     Dates: start: 2014
  135. OPANA [Concomitant]
     Active Substance: OXYMORPHONE HYDROCHLORIDE
     Indication: PAIN
     Dosage: UNK
     Dates: start: 2010, end: 2013
  136. OXYMORPHONE [Concomitant]
     Active Substance: OXYMORPHONE
     Indication: PAIN
     Dosage: UNK
     Dates: start: 2011, end: 2013
  137. AZITHROMYCIN ANHYDROUS. [Concomitant]
     Active Substance: AZITHROMYCIN ANHYDROUS
     Indication: INFECTION
     Dosage: UNK
     Dates: start: 2015, end: 2016
  138. PLAVIX [Concomitant]
     Active Substance: CLOPIDOGREL BISULFATE
     Indication: BLOOD DISORDER
     Dosage: UNK
     Dates: start: 2006
  139. ABILIFY [Concomitant]
     Active Substance: ARIPIPRAZOLE
     Indication: BIPOLAR DISORDER
     Dosage: UNK
     Dates: start: 2012
  140. LIDOCAINE. [Concomitant]
     Active Substance: LIDOCAINE
     Indication: HEART RATE IRREGULAR
     Dosage: UNK
     Dates: start: 2008
  141. LIDOCAINE. [Concomitant]
     Active Substance: LIDOCAINE
     Indication: HYPOAESTHESIA
  142. FOLITAB [FOLIC ACID] [Concomitant]
     Indication: ANAEMIA
     Dosage: UNK
     Dates: start: 2007
  143. NAPROXEN. [Concomitant]
     Active Substance: NAPROXEN
     Indication: BONE PAIN

REACTIONS (5)
  - Swelling [Unknown]
  - Migraine [Unknown]
  - Acute kidney injury [Not Recovered/Not Resolved]
  - Stomatitis [Unknown]
  - Temporomandibular joint syndrome [Unknown]

NARRATIVE: CASE EVENT DATE: 201707
